FAERS Safety Report 8574680-3 (Version None)
Quarter: 2012Q3

REPORT INFORMATION
  Report Type: 
  Country: None (occurrence: None)
  Receive Date: 20120807
  Receipt Date: 20120710
  Transmission Date: 20120928
  Serious: No
  Sender: FDA-Public Use
  Company Number: US-009507513-1207USA007700

PATIENT

DRUGS (5)
  1. UBIDECARENONE [Concomitant]
  2. VICTRELIS [Suspect]
     Indication: HEPATITIS C
     Dosage: 4 DF, UNK
     Route: 048
  3. CALCIUM (UNSPECIFIED) [Concomitant]
  4. CELEXA [Concomitant]
  5. ZYRTEC [Concomitant]

REACTIONS (3)
  - NAUSEA [None]
  - DYSGEUSIA [None]
  - DRY MOUTH [None]
